FAERS Safety Report 6911963-4 (Version None)
Quarter: 2010Q3

REPORT INFORMATION
  Report Type: 
  Country: None (occurrence: None)
  Receive Date: 20100806
  Receipt Date: 20071211
  Transmission Date: 20110219
  Serious: Yes (Other)
  Sender: FDA-Public Use
  Company Number: US-PFIZER INC-2007084215

PATIENT
  Sex: Male
  Weight: 108.86 kg

DRUGS (5)
  1. DILANTIN-125 [Suspect]
     Indication: CONVULSION
     Dates: start: 19790101
  2. PHENOBARBITAL [Concomitant]
  3. MONOPRIL [Concomitant]
  4. HYDROCHLOROTHIAZIDE [Concomitant]
  5. METOPROLOL [Concomitant]

REACTIONS (2)
  - ANTICONVULSANT DRUG LEVEL DECREASED [None]
  - CONVULSION [None]
